FAERS Safety Report 8534426-1 (Version None)
Quarter: 2012Q3

REPORT INFORMATION
  Report Type: 
  Country: None (occurrence: None)
  Receive Date: 20120724
  Receipt Date: 20120719
  Transmission Date: 20120928
  Serious: Yes (Other)
  Sender: FDA-Public Use
  Company Number: PHEH2012US014271

PATIENT

DRUGS (1)
  1. GILENYA [Suspect]

REACTIONS (1)
  - CARDIAC DISORDER [None]
